FAERS Safety Report 13849080 (Version 1)
Quarter: 2017Q3

REPORT INFORMATION
  Report Type: Spontaneous
  Country: US (occurrence: US)
  Receive Date: 20170809
  Receipt Date: 20170809
  Transmission Date: 20171127
  Serious: Yes (Other)
  Sender: FDA-Public Use
  Company Number: None

PATIENT
  Age: 72 Year
  Sex: Female
  Weight: 59.02 kg

DRUGS (2)
  1. QVAR [Suspect]
     Active Substance: BECLOMETHASONE DIPROPIONATE
     Dates: start: 20170509
  2. BREO ELLIPTA [Suspect]
     Active Substance: FLUTICASONE FUROATE\VILANTEROL TRIFENATATE
     Indication: ASTHMA
     Dates: start: 20170127

REACTIONS (7)
  - Oral disorder [None]
  - Squamous cell carcinoma of the oral cavity [None]
  - Lymphadenopathy [None]
  - Oropharyngeal pain [None]
  - Aphonia [None]
  - Dysphonia [None]
  - Blood glucose increased [None]

NARRATIVE: CASE EVENT DATE: 20170127
